FAERS Safety Report 8073858-5 (Version None)
Quarter: 2011Q4

REPORT INFORMATION
  Report Type: 
  Country: None (occurrence: None)
  Receive Date: 20111221
  Receipt Date: 20110303
  Transmission Date: 20120403
  Serious: Yes (Other)
  Sender: FDA-Public Use
  Company Number: PHHY2011US18196

PATIENT
  Age: 49 Year
  Sex: Female

DRUGS (4)
  1. LYRICA [Concomitant]
  2. ADVAIR HFA [Concomitant]
  3. LEVOTHYROXINE SODIUM [Concomitant]
  4. EXJADE [Suspect]
     Indication: SICKLE CELL ANAEMIA

REACTIONS (8)
  - VOMITING [None]
  - DIZZINESS [None]
  - BLOOD URINE PRESENT [None]
  - THROMBOCYTOPENIA [None]
  - NAUSEA [None]
  - DIARRHOEA [None]
  - MEMORY IMPAIRMENT [None]
  - MUSCULAR WEAKNESS [None]
